FAERS Safety Report 4474739-6 (Version None)
Quarter: 2004Q4

REPORT INFORMATION
  Report Type: 
  Country: None (occurrence: None)
  Receive Date: 20041012
  Receipt Date: 20040927
  Transmission Date: 20050328
  Serious: Yes (Hospitalization)
  Sender: FDA-Public Use
  Company Number: 2004230316JP

PATIENT
  Age: 69 Year
  Sex: Female
  Weight: 63 kg

DRUGS (7)
  1. FARMORUBICIN (EPIRUBICIN HYDROCHLORIDE) POWDER, STERILE [Suspect]
     Indication: BREAST CANCER FEMALE
     Dosage: 120 MG, CYCLE 1, DAILY, IV
     Route: 042
     Dates: start: 20040312, end: 20040312
  2. CYCLOPHOSPHAMIDE [Suspect]
     Indication: BREAST CANCER FEMALE
     Dosage: 900 MG, CYCLE 1, DAILY, IV
     Route: 042
     Dates: start: 20040312, end: 20040312
  3. AMARYL [Concomitant]
  4. ANTIEMETICS AND ANTINAUSEANTS [Concomitant]
  5. KYTRIL [Concomitant]
  6. GASTER [Concomitant]
  7. NEUQUINON (UBIDECARENONE) [Concomitant]

REACTIONS (4)
  - CRYPTOGENIC ORGANIZING PNEUMONIA [None]
  - HOARSENESS [None]
  - INTERSTITIAL LUNG DISEASE [None]
  - STRIDOR [None]
